FAERS Safety Report 6926001-7 (Version None)
Quarter: 2010Q3

REPORT INFORMATION
  Report Type: 
  Country: None (occurrence: None)
  Receive Date: 20100816
  Receipt Date: 20100804
  Transmission Date: 20110219
  Serious: No
  Sender: FDA-Public Use
  Company Number: US-B.I. PHARMACEUTICALS,INC./RIDGEFIELD-2010-BP-08916BP

PATIENT
  Sex: Male

DRUGS (4)
  1. ZANTAC 150 [Suspect]
     Indication: DYSPEPSIA
     Route: 048
     Dates: start: 20100401
  2. METOPROLOL TARTRATE [Concomitant]
     Indication: CARDIAC DISORDER
     Route: 048
     Dates: start: 20090801
  3. PROTONIX [Concomitant]
     Indication: CARDIAC DISORDER
     Route: 048
     Dates: start: 20090801
  4. NITROGLYCERIN [Concomitant]
     Indication: CARDIAC DISORDER
     Route: 048
     Dates: start: 20090801

REACTIONS (1)
  - PRURITUS GENERALISED [None]
